FAERS Safety Report 4691870-0 (Version None)
Quarter: 2005Q2

REPORT INFORMATION
  Report Type: 
  Country: None (occurrence: None)
  Receive Date: 20050615
  Receipt Date: 20050615
  Transmission Date: 20051028
  Serious: Yes (Hospitalization)
  Sender: FDA-Public Use
  Company Number: None

PATIENT
  Age: 63 Year
  Sex: Female
  Weight: 58.0604 kg

DRUGS (22)
  1. TAXOTERE [Suspect]
     Indication: NON-SMALL CELL LUNG CANCER
     Dosage: 20 MG/M2 WKLY
     Dates: start: 20050316
  2. TAXOTERE [Suspect]
     Indication: NON-SMALL CELL LUNG CANCER
     Dosage: 20 MG/M2 WKLY
     Dates: start: 20050322
  3. TAXOTERE [Suspect]
     Indication: NON-SMALL CELL LUNG CANCER
     Dosage: 20 MG/M2 WKLY
     Dates: start: 20050405
  4. TAXOTERE [Suspect]
     Indication: NON-SMALL CELL LUNG CANCER
     Dosage: 20 MG/M2 WKLY
     Dates: start: 20050426
  5. CARBOPLATIN [Suspect]
     Indication: NON-SMALL CELL LUNG CANCER
     Dosage: AUC 2 WKLY
     Dates: start: 20050316
  6. CARBOPLATIN [Suspect]
     Indication: NON-SMALL CELL LUNG CANCER
     Dosage: AUC 2 WKLY
     Dates: start: 20050322
  7. CARBOPLATIN [Suspect]
     Indication: NON-SMALL CELL LUNG CANCER
     Dosage: AUC 2 WKLY
     Dates: start: 20050405
  8. CARBOPLATIN [Suspect]
     Indication: NON-SMALL CELL LUNG CANCER
     Dosage: AUC 2 WKLY
     Dates: start: 20050426
  9. KYTRIL [Concomitant]
  10. COMPAZINE [Concomitant]
  11. LEVAQUIN [Concomitant]
  12. PHENERGAN [Concomitant]
  13. PREDNISONE TAB [Concomitant]
  14. REGLAN [Concomitant]
  15. ATIVAN [Concomitant]
  16. PREMARIN [Concomitant]
  17. ASPIRIN [Concomitant]
  18. CALCIUM GLUCONATE [Concomitant]
  19. ELAVIL [Concomitant]
  20. LOPID [Concomitant]
  21. HYDROXYZINE [Concomitant]
  22. ACTONEL [Concomitant]

REACTIONS (6)
  - COMPRESSION FRACTURE [None]
  - DIZZINESS [None]
  - FALL [None]
  - METASTASES TO CENTRAL NERVOUS SYSTEM [None]
  - NAUSEA [None]
  - VOMITING [None]
